FAERS Safety Report 5023571-3 (Version None)
Quarter: 2006Q2

REPORT INFORMATION
  Report Type: 
  Country: None (occurrence: None)
  Receive Date: 20060612
  Receipt Date: 20060407
  Transmission Date: 20061013
  Serious: Yes (Hospitalization)
  Sender: FDA-Public Use
  Company Number: US-ROCHE-443933

PATIENT
  Age: 40 Year
  Sex: Female
  Weight: 108.9 kg

DRUGS (4)
  1. XENICAL [Suspect]
     Route: 048
     Dates: start: 20030615, end: 20030615
  2. XENICAL [Suspect]
     Route: 048
  3. QUINAPRIL [Concomitant]
     Indication: HYPERTENSION
  4. PREVACID [Concomitant]

REACTIONS (5)
  - ABDOMINAL DISTENSION [None]
  - ASTHENIA [None]
  - CHOLECYSTITIS [None]
  - FATIGUE [None]
  - IRRITABLE BOWEL SYNDROME [None]
